FAERS Safety Report 11081938 (Version 1)
Quarter: 2015Q2

REPORT INFORMATION
  Report Type: Spontaneous
  Country: NL (occurrence: None)
  Receive Date: 20150429
  Receipt Date: 20150429
  Transmission Date: 20150821
  Serious: No
  Sender: FDA-Public Use
  Company Number: 1594151

PATIENT
  Age: 79 Year
  Sex: Male

DRUGS (3)
  1. METOCLOPRAMID (NON-SPECIFIC) [Suspect]
     Active Substance: METOCLOPRAMIDE
     Indication: GASTROOESOPHAGEAL REFLUX DISEASE
  2. METRONIDAZOLE (NON-SPECIFIC) [Suspect]
     Active Substance: METRONIDAZOLE
     Indication: ANTIBIOTIC THERAPY
  3. LOPERAMIDE (NON SPECIFIC) [Suspect]
     Active Substance: LOPERAMIDE
     Indication: DIARRHOEA

REACTIONS (1)
  - Linear IgA disease [None]
